FAERS Safety Report 5990477-2 (Version None)
Quarter: 2008Q4

REPORT INFORMATION
  Report Type: 
  Country: None (occurrence: None)
  Receive Date: 20081211
  Receipt Date: 20081208
  Transmission Date: 20090506
  Serious: Yes (Death)
  Sender: FDA-Public Use
  Company Number: AU-BRISTOL-MYERS SQUIBB COMPANY-14434922

PATIENT
  Age: 69 Year
  Sex: Male

DRUGS (6)
  1. CYCLOPHOSPHAMIDE [Suspect]
     Indication: NON-HODGKIN'S LYMPHOMA
  2. ETOPOSIDE [Suspect]
     Indication: NON-HODGKIN'S LYMPHOMA
  3. VINCRISTINE SULFATE [Suspect]
     Indication: NON-HODGKIN'S LYMPHOMA
  4. MITOXANTRONE [Suspect]
     Indication: NON-HODGKIN'S LYMPHOMA
  5. PREDNISOLONE [Suspect]
     Indication: NON-SMALL CELL LUNG CANCER
  6. RITUXIMAB [Suspect]
     Indication: NON-HODGKIN'S LYMPHOMA

REACTIONS (1)
  - HYPERAMMONAEMIC ENCEPHALOPATHY [None]
